FAERS Safety Report 5099822-6 (Version None)
Quarter: 2006Q3

REPORT INFORMATION
  Report Type: 
  Country: None (occurrence: None)
  Receive Date: 20060908
  Receipt Date: 20060905
  Transmission Date: 20061208
  Serious: Yes (Other)
  Sender: FDA-Public Use
  Company Number: US-MERCK-0609USA00731

PATIENT
  Age: 84 Year
  Sex: Female

DRUGS (14)
  1. FOSAMAX [Suspect]
     Route: 048
     Dates: start: 20010101, end: 20060101
  2. FOSAMAX [Suspect]
     Route: 048
     Dates: start: 20060903
  3. SPIRONOLACTONE [Concomitant]
     Route: 065
  4. MOBIC [Concomitant]
     Route: 065
  5. NITROGLYCERIN [Concomitant]
     Route: 065
  6. COREG [Concomitant]
     Route: 065
  7. PRINIVIL [Concomitant]
     Route: 065
  8. PLAVIX [Concomitant]
     Route: 065
  9. VITAMIN D (UNSPECIFIED) [Concomitant]
     Route: 065
  10. LIPITOR [Concomitant]
     Route: 065
  11. ASPIRIN [Concomitant]
     Route: 065
  12. MAGNESIUM OXIDE [Concomitant]
     Route: 065
  13. TYLENOL [Concomitant]
     Route: 065
  14. NITROGLYCERIN [Concomitant]
     Route: 065

REACTIONS (2)
  - CHEST PAIN [None]
  - MYOCARDIAL INFARCTION [None]
